FAERS Safety Report 18951232 (Version 2)
Quarter: 2021Q2

REPORT INFORMATION
  Report Type: Report from Study
  Country: None (occurrence: US)
  Receive Date: 20210228
  Receipt Date: 20210414
  Transmission Date: 20210717
  Serious: Yes (Other)
  Sender: FDA-Public Use
  Company Number: US-ABBVIE-21K-163-3786173-00

PATIENT
  Sex: Male
  Weight: 78.54 kg

DRUGS (1)
  1. HUMIRA [Suspect]
     Active Substance: ADALIMUMAB
     Indication: PSORIATIC ARTHROPATHY
     Route: 058

REACTIONS (7)
  - Deafness [Unknown]
  - Malaise [Unknown]
  - Blindness [Unknown]
  - Arthritis [Unknown]
  - Skin cancer [Unknown]
  - Chondropathy [Unknown]
  - Joint range of motion decreased [Unknown]
